FAERS Safety Report 19811343 (Version 26)
Quarter: 2022Q2

REPORT INFORMATION
  Report Type: Report from Study
  Country: GB (occurrence: GB)
  Receive Date: 20210909
  Receipt Date: 20220602
  Transmission Date: 20220720
  Serious: Yes (Death, Congenital Anomaly, Other)
  Sender: FDA-Public Use
  Company Number: GB-VIIV HEALTHCARE LIMITED-GB2020GSK119097

PATIENT
  Age: 4 Day
  Sex: Male
  Weight: 2.855 kg

DRUGS (70)
  1. VIRAMUNE [Suspect]
     Active Substance: NEVIRAPINE
     Indication: HIV infection
     Dosage: UNK
     Route: 064
  2. VIRAMUNE [Suspect]
     Active Substance: NEVIRAPINE
     Route: 064
  3. ZIDOVUDINE [Suspect]
     Active Substance: ZIDOVUDINE
     Indication: Product used for unknown indication
     Dosage: 900 MILLIGRAM, QD;
     Route: 064
  4. LAMIVUDINE [Suspect]
     Active Substance: LAMIVUDINE
     Indication: Product used for unknown indication
     Dosage: 1 DF, QD (TABLET) 600 MG/ 300 MG
     Route: 064
  5. LAMIVUDINE [Suspect]
     Active Substance: LAMIVUDINE
     Indication: HIV infection
     Dosage: 1 DOSAGE FORM, QD (TABLET), (DOSE: 1 TABLET/CAPSULE; STRENGTH: 600 MG/ 300 MG), DURING FIRST TRIM...
     Route: 064
  6. NEVIRAPINE [Suspect]
     Active Substance: NEVIRAPINE
     Indication: Product used for unknown indication
     Route: 064
  7. ASPIRIN [Suspect]
     Active Substance: ASPIRIN
     Indication: Product used for unknown indication
     Dosage: UNK ( 1 TRIMESTER); ;
     Route: 064
  8. ASPIRIN [Suspect]
     Active Substance: ASPIRIN
     Indication: Foetal exposure during pregnancy
  9. ASPIRIN [Suspect]
     Active Substance: ASPIRIN
     Indication: Hypertension
  10. CHOLECALCIFEROL [Suspect]
     Active Substance: CHOLECALCIFEROL
     Indication: Product used for unknown indication
     Dosage: UNK (1ST TRIMESTER); ;
     Route: 064
  11. ERGOCALCIFEROL [Suspect]
     Active Substance: ERGOCALCIFEROL
     Indication: Product used for unknown indication
     Dosage: UNK; ;
     Route: 065
  12. NEVIRAPINE [Suspect]
     Active Substance: NEVIRAPINE
     Indication: Product used for unknown indication
     Route: 064
  13. NEVIRAPINE [Suspect]
     Active Substance: NEVIRAPINE
     Indication: Foetal exposure during pregnancy
  14. VITAMIN D [Suspect]
     Active Substance: VITAMIN D NOS
     Indication: Product used for unknown indication
     Dosage: UNK, PRIOR TO CONCEPTION, DURING 1, 2 AND 3 TRIMESTER ( 39 WEEKS), VITAMIN D2; ;
     Route: 064
  15. LABETALOL [Suspect]
     Active Substance: LABETALOL\LABETALOL HYDROCHLORIDE
     Indication: Foetal exposure during pregnancy
     Dosage: UNK(TABLET),  IN 1ST TRIMESTER
     Route: 064
  16. LABETALOL [Suspect]
     Active Substance: LABETALOL\LABETALOL HYDROCHLORIDE
     Indication: Hypertension
     Dosage: UNK
     Route: 064
  17. LABETALOL [Suspect]
     Active Substance: LABETALOL\LABETALOL HYDROCHLORIDE
     Dosage: UNK
     Route: 064
  18. LABETALOL [Suspect]
     Active Substance: LABETALOL\LABETALOL HYDROCHLORIDE
     Dosage: 1 DOSAGE FORM (1 TRIMESTER)
     Route: 064
  19. LABETALOL [Suspect]
     Active Substance: LABETALOL\LABETALOL HYDROCHLORIDE
     Dosage: UNK
     Route: 064
  20. LABETALOL [Suspect]
     Active Substance: LABETALOL\LABETALOL HYDROCHLORIDE
     Dosage: UNK
     Route: 064
  21. LABETALOL [Suspect]
     Active Substance: LABETALOL\LABETALOL HYDROCHLORIDE
     Dosage: 1 DOSAGE FORM (1 TRIMESTER)
     Route: 064
  22. LABETALOL [Suspect]
     Active Substance: LABETALOL\LABETALOL HYDROCHLORIDE
     Dosage: 1 DOSAGE FORM (1 TRIMESTER)
     Route: 064
  23. LABETALOL [Suspect]
     Active Substance: LABETALOL\LABETALOL HYDROCHLORIDE
     Dosage: 1 DOSAGE FORM
     Route: 064
  24. COMBIVIR [Suspect]
     Active Substance: LAMIVUDINE\ZIDOVUDINE
     Indication: Foetal exposure during pregnancy
     Route: 064
  25. COMBIVIR [Suspect]
     Active Substance: LAMIVUDINE\ZIDOVUDINE
     Indication: Product used for unknown indication
     Route: 064
  26. COMBIVIR [Suspect]
     Active Substance: LAMIVUDINE\ZIDOVUDINE
     Route: 064
  27. COMBIVIR [Suspect]
     Active Substance: LAMIVUDINE\ZIDOVUDINE
     Route: 064
  28. ABACAVIR [Suspect]
     Active Substance: ABACAVIR
     Indication: HIV infection
     Dosage: 400 DOSAGE FORM, QD
     Route: 064
  29. ABACAVIR [Suspect]
     Active Substance: ABACAVIR
     Dosage: 1 DOSAGE FORM, QD
     Route: 064
  30. ABACAVIR [Suspect]
     Active Substance: ABACAVIR
     Dosage: 400 DOSAGE FORM, QD
     Route: 064
  31. ABACAVIR [Suspect]
     Active Substance: ABACAVIR
     Dosage: 1 DOSAGE FORM, QD (MATERNAL DOSE: 400 QD )
     Route: 064
  32. ABACAVIR [Suspect]
     Active Substance: ABACAVIR
     Dosage: 1 DOSAGE FORM, QD (DOSE: 1 TABLET/CAPSULE; STRENGTH: 600 MG/ 300 MG)
     Route: 064
  33. ABACAVIR [Suspect]
     Active Substance: ABACAVIR
     Dosage: 1 DOSAGE FORM, QD
     Route: 064
  34. ABACAVIR [Suspect]
     Active Substance: ABACAVIR
     Dosage: 1 DOSAGE FORM, QD (MATERNAL DOSE: 400 QD )
     Route: 064
  35. ABACAVIR [Suspect]
     Active Substance: ABACAVIR
     Dosage: 1 DOSAGE FORM, QD (DOSE: 1 TABLET/CAPSULE; STRENGTH: 600 MG/ 300 MG)
     Route: 064
  36. ABACAVIR [Suspect]
     Active Substance: ABACAVIR
     Dosage: 400 DOSAGE FORM, QD
     Route: 064
  37. ABACAVIR [Suspect]
     Active Substance: ABACAVIR
     Dosage: 400 DOSAGE FORM, QD
     Route: 064
  38. ABACAVIR [Suspect]
     Active Substance: ABACAVIR
     Dosage: 1 DOSAGE FORM, QD (DOSE: 1 TABLET/CAPSULE; STRENGTH: 600 MG/ 300 MG)
     Route: 064
  39. ABACAVIR [Suspect]
     Active Substance: ABACAVIR
     Dosage: UNK
     Route: 064
  40. ABACAVIR [Suspect]
     Active Substance: ABACAVIR
     Dosage: MATERNAL DOSE: 400 QD
     Route: 064
  41. ABACAVIR [Suspect]
     Active Substance: ABACAVIR
     Dosage: 1 DF, QD (DOSE: 1 TABLET/CAPSULE; STRENGTH: 600 MG/ 300 MG)
     Route: 064
  42. ABACAVIR [Suspect]
     Active Substance: ABACAVIR
     Dosage: 400 DOSAGE FORM
     Route: 064
  43. ABACAVIR [Suspect]
     Active Substance: ABACAVIR
     Dosage: 1 DOSAGE FORM
     Route: 064
  44. ABACAVIR [Suspect]
     Active Substance: ABACAVIR
     Dosage: 1 DOSAGE FORM
     Route: 064
  45. CHOLECALCIFEROL [Suspect]
     Active Substance: CHOLECALCIFEROL
     Indication: Product used for unknown indication
     Dosage: UNK
     Route: 064
  46. CHOLECALCIFEROL [Suspect]
     Active Substance: CHOLECALCIFEROL
     Indication: Foetal exposure during pregnancy
     Dosage: UNK
     Route: 064
  47. CHOLECALCIFEROL [Suspect]
     Active Substance: CHOLECALCIFEROL
     Indication: Product used for unknown indication
     Dosage: UNK, (1 TRIMESTER)
     Route: 064
  48. CHOLECALCIFEROL [Suspect]
     Active Substance: CHOLECALCIFEROL
     Dosage: UNK, (1 TRIMESTER)
     Route: 064
  49. CHOLECALCIFEROL [Suspect]
     Active Substance: CHOLECALCIFEROL
     Dosage: UNK, (1 TRIMESTER)
     Route: 064
  50. CHOLECALCIFEROL [Suspect]
     Active Substance: CHOLECALCIFEROL
     Dosage: UNK, (1 TRIMESTER)
     Route: 064
  51. CHOLECALCIFEROL [Suspect]
     Active Substance: CHOLECALCIFEROL
     Dosage: UNK, (1 TRIMESTER)
     Route: 064
  52. CHOLECALCIFEROL [Suspect]
     Active Substance: CHOLECALCIFEROL
     Dosage: UNK, (1 TRIMESTER)
     Route: 064
  53. CHOLECALCIFEROL [Suspect]
     Active Substance: CHOLECALCIFEROL
     Route: 064
  54. ABACAVIR AND LAMIVUDINE [Suspect]
     Active Substance: ABACAVIR SULFATE\LAMIVUDINE
     Indication: Foetal exposure during pregnancy
     Dosage: 400 DOSAGE FORM, QD (400 DOSAGE FORM, QD (400 DOSAGE FORM, ONCE A DAY))
     Route: 064
  55. ABACAVIR AND LAMIVUDINE [Suspect]
     Active Substance: ABACAVIR SULFATE\LAMIVUDINE
     Indication: HIV infection
     Dosage: 1 DF,  (TABLET) 600 MG/ 300 MG
     Route: 064
  56. NIFEDIPINE [Suspect]
     Active Substance: NIFEDIPINE
     Indication: Hypertension
     Dosage: UNK, (1 TRIMESTER)
     Route: 064
  57. NIFEDIPINE [Suspect]
     Active Substance: NIFEDIPINE
     Dosage: UNK,
  58. VITAMIN D2 [Suspect]
     Active Substance: ERGOCALCIFEROL
     Indication: Product used for unknown indication
     Dosage: UNK
     Route: 064
  59. VITAMIN D2 [Suspect]
     Active Substance: ERGOCALCIFEROL
     Dosage: UNK
     Route: 064
  60. VITAMIN D2 [Suspect]
     Active Substance: ERGOCALCIFEROL
     Dosage: UNK
     Route: 064
  61. VITAMIN D2 [Suspect]
     Active Substance: ERGOCALCIFEROL
     Dosage: UNK
     Route: 064
  62. VITAMIN D2 [Suspect]
     Active Substance: ERGOCALCIFEROL
     Dosage: UNK
     Route: 064
  63. VITAMIN D2 [Suspect]
     Active Substance: ERGOCALCIFEROL
     Dosage: UNK
     Route: 064
  64. VITAMIN D2 [Suspect]
     Active Substance: ERGOCALCIFEROL
     Dosage: UNK
     Route: 064
  65. VITAMIN D2 [Suspect]
     Active Substance: ERGOCALCIFEROL
     Route: 064
  66. ABACAVIR\LAMIVUDINE [Suspect]
     Active Substance: ABACAVIR\LAMIVUDINE
     Indication: HIV infection
     Dosage: 1 DOSAGE FORM, QD (TABLET)/ 600 MG/ 300 MG), 1ST TRIMESTER
     Route: 064
  67. LAMIVUDINE AND ZIDOVUDINE [Suspect]
     Active Substance: LAMIVUDINE\ZIDOVUDINE
     Indication: Product used for unknown indication
     Route: 064
  68. ABACAVIR SULFATE\LAMIVUDINE [Suspect]
     Active Substance: ABACAVIR SULFATE\LAMIVUDINE
     Indication: HIV infection
     Dosage: 1 DF, (TABLET) 600 MG/ 300 MG
     Route: 064
  69. VITAMIN D [Suspect]
     Active Substance: VITAMIN D NOS
     Indication: Foetal exposure during pregnancy
     Dosage: UNK
     Route: 064
  70. VITAMIN D [Concomitant]
     Active Substance: VITAMIN D NOS
     Indication: Product used for unknown indication
     Route: 064

REACTIONS (20)
  - Dandy-Walker syndrome [Fatal]
  - Polydactyly [Fatal]
  - Foetal exposure during pregnancy [Fatal]
  - Gene mutation [Fatal]
  - Atrioventricular septal defect [Fatal]
  - Pulmonary hypertension [Fatal]
  - Foetal exposure during pregnancy [Fatal]
  - Congenital central nervous system anomaly [Fatal]
  - Macrocephaly [Fatal]
  - Speech disorder developmental [Fatal]
  - Attention deficit hyperactivity disorder [Fatal]
  - Death [Fatal]
  - Ataxia [Fatal]
  - Neurodevelopmental disorder [Fatal]
  - Trisomy 21 [Fatal]
  - Dandy-Walker syndrome [Fatal]
  - Foetal exposure during pregnancy [Recovered/Resolved]
  - Attention deficit hyperactivity disorder [Unknown]
  - Polydactyly [Unknown]
  - Pre-eclampsia [Unknown]

NARRATIVE: CASE EVENT DATE: 20110305
